FAERS Safety Report 8532852-8 (Version None)
Quarter: 2012Q3

REPORT INFORMATION
  Report Type: 
  Country: None (occurrence: None)
  Receive Date: 20120712
  Receipt Date: 20120709
  Transmission Date: 20120928
  Serious: Yes (Hospitalization)
  Sender: FDA-Public Use
  Company Number: 2012-003

PATIENT
  Sex: Male

DRUGS (1)
  1. DIUREX TAB [Suspect]
     Indication: ABDOMINAL DISTENSION
     Dosage: 1 CAPSULE, 4XDAILY, ORAL
     Route: 048

REACTIONS (2)
  - PANCREATITIS [None]
  - CHOLELITHIASIS [None]
